FAERS Safety Report 18447616 (Version 1)
Quarter: 2020Q4

REPORT INFORMATION
  Report Type: Report from Study
  Country: ZA (occurrence: ZA)
  Receive Date: 20201101
  Receipt Date: 20201101
  Transmission Date: 20210114
  Serious: Yes (Hospitalization)
  Sender: FDA-Public Use
  Company Number: NVSC2020ZA290039

PATIENT
  Sex: Male

DRUGS (2)
  1. ENTRESTO [Suspect]
     Active Substance: SACUBITRIL\VALSARTAN
     Indication: CARDIAC FAILURE
     Dosage: 50 MG, BID
     Route: 048
  2. FUROSEMIDE. [Suspect]
     Active Substance: FUROSEMIDE
     Indication: CARDIAC FAILURE
     Dosage: 20 MG/KG, BID
     Route: 048

REACTIONS (6)
  - Dyspnoea exertional [Unknown]
  - Peripheral swelling [Unknown]
  - Fatigue [Unknown]
  - Abdominal distension [Unknown]
  - Dizziness [Unknown]
  - Ejection fraction decreased [Unknown]
